FAERS Safety Report 9629674 (Version 1)
Quarter: 2013Q4

REPORT INFORMATION
  Report Type: Spontaneous
  Country: NL (occurrence: NL)
  Receive Date: 20131017
  Receipt Date: 20131017
  Transmission Date: 20140711
  Serious: Yes (Hospitalization, Other)
  Sender: FDA-Public Use
  Company Number: NL-PFIZER INC-2013294442

PATIENT
  Age: 82 Year
  Sex: Female

DRUGS (1)
  1. AZITHROMYCIN [Suspect]
     Indication: INFLAMMATION
     Dosage: 500 MG, 1X/DAY
     Dates: start: 20130827

REACTIONS (3)
  - Hypertension [Recovered/Resolved with Sequelae]
  - Hallucination [Recovered/Resolved with Sequelae]
  - Eye disorder [Not Recovered/Not Resolved]
